APPROVED DRUG PRODUCT: STAVZOR
Active Ingredient: VALPROIC ACID
Strength: 500MG **Federal Register determination that product was not discontinued or withdrawn for safety or effectiveness reasons**
Dosage Form/Route: CAPSULE, DELAYED RELEASE;ORAL
Application: N022152 | Product #003
Applicant: BIONPHARMA INC
Approved: Jul 29, 2008 | RLD: Yes | RS: No | Type: DISCN